FAERS Safety Report 7279075-0 (Version None)
Quarter: 2011Q1

REPORT INFORMATION
  Report Type: 
  Country: None (occurrence: None)
  Receive Date: 20110207
  Receipt Date: 20110202
  Transmission Date: 20110831
  Serious: Yes (Death, Hospitalization)
  Sender: FDA-Public Use
  Company Number: PHHY2011EC08406

PATIENT
  Sex: Female

DRUGS (2)
  1. ACLASTA [Suspect]
     Indication: OSTEOPOROSIS
     Dosage: 5 MG
     Route: 042
     Dates: start: 20090203
  2. LOSARTAN POTASSIUM [Concomitant]
     Dosage: 50 MG, QD

REACTIONS (5)
  - PNEUMONIA [None]
  - CARDIAC ARREST [None]
  - SWELLING FACE [None]
  - COUGH [None]
  - DYSPNOEA [None]
